FAERS Safety Report 7926997-0 (Version None)
Quarter: 2011Q4

REPORT INFORMATION
  Report Type: 
  Country: None (occurrence: None)
  Receive Date: 20111118
  Receipt Date: 20111109
  Transmission Date: 20120403
  Serious: Yes (Other)
  Sender: FDA-Public Use
  Company Number: BR-US-EMD SERONO, INC.-7095353

PATIENT
  Sex: Female

DRUGS (5)
  1. ASPIRIN [Concomitant]
  2. REBIF [Suspect]
     Indication: RELAPSING-REMITTING MULTIPLE SCLEROSIS
     Dates: start: 20110519
  3. XALATAN [Concomitant]
     Indication: GLAUCOMA
  4. MICARDIS [Concomitant]
  5. ACETAMINOPHEN [Concomitant]

REACTIONS (3)
  - NEPHROLITHIASIS [None]
  - URINARY INCONTINENCE [None]
  - INJECTION SITE ERYTHEMA [None]
